FAERS Safety Report 24837517 (Version 1)
Quarter: 2025Q1

REPORT INFORMATION
  Report Type: Spontaneous
  Country: US (occurrence: None)
  Receive Date: 20250112
  Receipt Date: 20250112
  Transmission Date: 20250409
  Serious: Yes (Other)
  Sender: FDA-CTU
  Company Number: None

PATIENT
  Age: 76 Year
  Sex: Female
  Weight: 55.35 kg

DRUGS (1)
  1. XEMBIFY [Suspect]
     Active Substance: HUMAN IMMUNOGLOBULIN G
     Indication: Selective IgG subclass deficiency
     Dosage: OTHER FREQUENCY : QW;?
     Route: 058

REACTIONS (3)
  - Infusion site erythema [None]
  - Infusion site pruritus [None]
  - Dermatitis contact [None]

NARRATIVE: CASE EVENT DATE: 20250102
